FAERS Safety Report 5517387-9 (Version None)
Quarter: 2007Q4

REPORT INFORMATION
  Report Type: 
  Country: None (occurrence: None)
  Receive Date: 20071114
  Receipt Date: 20071108
  Transmission Date: 20080405
  Serious: Yes (Hospitalization)
  Sender: FDA-Public Use
  Company Number: US-AVENTIS-200720297GDDC

PATIENT
  Age: 54 Year
  Sex: Female

DRUGS (17)
  1. ARAVA [Suspect]
     Indication: RHEUMATOID ARTHRITIS
     Route: 048
     Dates: start: 20070909, end: 20071003
  2. METHOTREXATE [Suspect]
     Indication: RHEUMATOID ARTHRITIS
     Dosage: DOSE: UNK
     Dates: start: 20070227, end: 20071010
  3. DOXYCYCLINE [Suspect]
     Indication: PHARYNGOTONSILLITIS
     Dosage: DOSE: UNK
     Dates: start: 20071001, end: 20071008
  4. TYLENOL [Suspect]
     Indication: PHARYNGOTONSILLITIS
     Dosage: DOSE: UNK
     Dates: start: 20071001, end: 20071008
  5. MAGNESIUM OXIDE [Concomitant]
     Dosage: DOSE: UNK
     Dates: start: 20070522, end: 20071010
  6. MAGNESIUM OXIDE [Concomitant]
     Dosage: DOSE: UNK
     Dates: start: 20071013, end: 20071014
  7. STILLEN CAP [Concomitant]
     Dosage: DOSE: UNK
     Dates: start: 20050502, end: 20071010
  8. STILLEN CAP [Concomitant]
     Dosage: DOSE: UNK
     Dates: start: 20071013, end: 20071014
  9. ALMAGEL                            /00909601/ [Concomitant]
     Dosage: DOSE: UNK
     Dates: start: 20070227, end: 20071010
  10. ALMAGEL                            /00909601/ [Concomitant]
     Dosage: DOSE: UNK
     Dates: start: 20071013, end: 20071014
  11. ACTIFED                            /00005601/ [Concomitant]
     Dosage: DOSE: UNK
     Dates: start: 20071001, end: 20071008
  12. LEVOTUSS                           /00884201/ [Concomitant]
     Dosage: DOSE: UNK
     Dates: start: 20071001, end: 20071008
  13. FOLINA                             /00024201/ [Concomitant]
     Dosage: DOSE: UNK
     Dates: start: 20050630, end: 20071010
  14. FOLINA                             /00024201/ [Concomitant]
     Dosage: DOSE: UNK
     Dates: start: 20071013, end: 20071014
  15. UNIVASC [Concomitant]
     Dosage: DOSE: UNK
     Dates: start: 20060824, end: 20071010
  16. UNIVASC [Concomitant]
     Dosage: DOSE: UNK
     Dates: start: 20071013, end: 20071014
  17. UNIVASC [Concomitant]
     Dosage: DOSE: UNK
     Dates: start: 20071015

REACTIONS (3)
  - ALANINE AMINOTRANSFERASE INCREASED [None]
  - ASPARTATE AMINOTRANSFERASE INCREASED [None]
  - LIVER FUNCTION TEST ABNORMAL [None]
